FAERS Safety Report 12919814 (Version 1)
Quarter: 2016Q4

REPORT INFORMATION
  Report Type: Spontaneous
  Country: US (occurrence: US)
  Receive Date: 20161108
  Receipt Date: 20161108
  Transmission Date: 20170207
  Serious: No
  Sender: FDA-Public Use
  Company Number: US-PFIZER INC-2016516449

PATIENT
  Age: 47 Year
  Sex: Male
  Weight: 99.79 kg

DRUGS (1)
  1. VIAGRA [Suspect]
     Active Substance: SILDENAFIL CITRATE
     Dosage: UNK

REACTIONS (3)
  - Semen volume increased [Unknown]
  - Ejaculation disorder [Unknown]
  - Erection increased [Unknown]
